FAERS Safety Report 26087046 (Version 1)
Quarter: 2025Q4

REPORT INFORMATION
  Report Type: Spontaneous
  Country: EU (occurrence: EU)
  Receive Date: 20251125
  Receipt Date: 20251125
  Transmission Date: 20260119
  Serious: Yes (Other)
  Sender: RANBAXY
  Company Number: EU-AEMPS-1741005

PATIENT
  Age: 49 Year
  Sex: Male

DRUGS (6)
  1. PREGABALIN [Interacting]
     Active Substance: PREGABALIN
     Indication: Sciatica
     Dosage: 50 MILLIGRAM, BID
     Route: 048
     Dates: start: 20250602
  2. TRAMADOL [Interacting]
     Active Substance: TRAMADOL
     Indication: Sciatica
     Dosage: 100 MILLIGRAM, TID
     Route: 048
     Dates: start: 20250602
  3. ARCOXIA [Interacting]
     Active Substance: ETORICOXIB
     Indication: Sciatica
     Dosage: 120 MILLIGRAM, QD
     Route: 048
     Dates: start: 20250602
  4. METHOCARBAMOL [Interacting]
     Active Substance: METHOCARBAMOL
     Indication: Sciatica
     Dosage: 500 MILLIGRAM, TID
     Route: 048
     Dates: start: 20250602
  5. CLONAZEPAM [Interacting]
     Active Substance: CLONAZEPAM
     Indication: Sciatica
     Dosage: 5 GTT DROPS, TID
     Route: 048
     Dates: start: 20250602
  6. ACETAMINOPHEN [Concomitant]
     Active Substance: ACETAMINOPHEN
     Indication: Sciatica
     Dosage: 1 GRAM, TID
     Route: 048
     Dates: start: 20250602

REACTIONS (3)
  - Speech disorder [Unknown]
  - Dizziness [Unknown]
  - Somnolence [Unknown]

NARRATIVE: CASE EVENT DATE: 20250606
